FAERS Safety Report 8961898 (Version 1)
Quarter: 2012Q4

REPORT INFORMATION
  Report Type: 
  Country: US (occurrence: US)
  Receive Date: 20121213
  Receipt Date: 20121213
  Transmission Date: 20130627
  Serious: Yes (Hospitalization)
  Sender: FDA-Public Use
  Company Number: US-ELI_LILLY_AND_COMPANY-US201110006017

PATIENT
  Age: 52 None
  Sex: Female

DRUGS (3)
  1. FORTEO [Suspect]
     Indication: OSTEOPOROSIS
     Dosage: 20 ug, qd
     Route: 058
     Dates: start: 20111004
  2. FORTEO [Suspect]
     Dosage: 20 ug, qd
     Route: 058
  3. FORTEO [Suspect]
     Dosage: 20 ug, qd
     Route: 058

REACTIONS (11)
  - Staphylococcal infection [Unknown]
  - Clostridium difficile infection [Unknown]
  - Medical device complication [Unknown]
  - Breast pain [Unknown]
  - Pain in extremity [Unknown]
  - Pruritus [Unknown]
  - Influenza [Unknown]
  - Limb injury [Unknown]
  - Injection site pain [Unknown]
  - Rash [Unknown]
  - Drug hypersensitivity [Unknown]
